FAERS Safety Report 12281713 (Version 2)
Quarter: 2016Q3

REPORT INFORMATION
  Report Type: Spontaneous
  Country: US (occurrence: US)
  Receive Date: 20160419
  Receipt Date: 20160721
  Transmission Date: 20161109
  Serious: No
  Sender: FDA-Public Use
  Company Number: US-TEVA-641336USA

PATIENT
  Age: 44 Year
  Sex: Female

DRUGS (1)
  1. ZECUITY [Suspect]
     Active Substance: SUMATRIPTAN SUCCINATE
     Route: 062
     Dates: start: 20160301, end: 20160301

REACTIONS (11)
  - Device leakage [Unknown]
  - Application site dryness [Recovered/Resolved]
  - Application site irritation [Unknown]
  - Drug effect incomplete [Unknown]
  - Application site paraesthesia [Unknown]
  - Application site discolouration [Unknown]
  - Application site discomfort [Unknown]
  - Application site exfoliation [Recovered/Resolved]
  - Application site erythema [Unknown]
  - Wound drainage [Recovered/Resolved]
  - Hyperaesthesia [Unknown]

NARRATIVE: CASE EVENT DATE: 20160301
